FAERS Safety Report 9460125 (Version 2)
Quarter: 2013Q3

REPORT INFORMATION
  Report Type: Spontaneous
  Country: JP (occurrence: JP)
  Receive Date: 20130815
  Receipt Date: 20130827
  Transmission Date: 20140515
  Serious: Yes (Other)
  Sender: FDA-Public Use
  Company Number: JP-PFIZER INC-2013237035

PATIENT
  Age: 54 Year
  Sex: Male

DRUGS (4)
  1. GABAPEN [Suspect]
     Indication: NEURALGIA
     Dosage: 300 MG, 2X/DAY
     Route: 048
  2. 5-FU [Suspect]
     Dosage: 5 CONSECUTIVE DAYS PER 4-5 WEEKS
  3. TAXOL [Suspect]
  4. RANDA [Suspect]

REACTIONS (1)
  - Bone marrow failure [Recovered/Resolved]
